FAERS Safety Report 9775673 (Version 1)
Quarter: 2013Q4

REPORT INFORMATION
  Report Type: Spontaneous
  Country: US (occurrence: US)
  Receive Date: 20131220
  Receipt Date: 20131220
  Transmission Date: 20140711
  Serious: No
  Sender: FDA-Public Use
  Company Number: US-009507513-1312USA008623

PATIENT
  Age: 76 Year
  Sex: Male

DRUGS (3)
  1. JANUVIA [Suspect]
     Indication: BLOOD GLUCOSE
     Dosage: 100 MG, QD
     Route: 048
     Dates: start: 20131213
  2. RAMIPRIL [Concomitant]
  3. RANEXA [Concomitant]

REACTIONS (1)
  - Blood glucose decreased [Not Recovered/Not Resolved]
